FAERS Safety Report 10047949 (Version 2)
Quarter: 2014Q2

REPORT INFORMATION
  Report Type: Spontaneous
  Country: GB (occurrence: GB)
  Receive Date: 20140331
  Receipt Date: 20140627
  Transmission Date: 20141212
  Serious: No
  Sender: FDA-Public Use
  Company Number: GB-VERTEX PHARMACEUTICALS INC-2014-001633

PATIENT
  Age: 36 Year
  Sex: Female

DRUGS (5)
  1. INCIVO [Suspect]
     Indication: HEPATITIS C
     Dosage: 2250 MG, QD
     Route: 048
     Dates: start: 20140126, end: 20140515
  2. REBETOL [Concomitant]
     Indication: HEPATITIS C
     Dosage: 600 MG, QD
     Route: 065
     Dates: start: 20140401
  3. REBETOL [Concomitant]
     Dosage: 12000 MG, QD
     Route: 065
     Dates: start: 20140126
  4. VIRAFERON PEG [Concomitant]
     Indication: HEPATITIS C
     Dosage: 150 ?G/KG, QW
     Route: 065
     Dates: start: 20140126
  5. CITALOPRAM [Concomitant]
     Indication: DEPRESSION
     Dosage: UNK
     Route: 065
     Dates: start: 2011

REACTIONS (2)
  - Off label use [Unknown]
  - Rash [Recovered/Resolved]
